FAERS Safety Report 15001787 (Version 1)
Quarter: 2018Q2

REPORT INFORMATION
  Report Type: Spontaneous
  Country: DE (occurrence: DE)
  Receive Date: 20180612
  Receipt Date: 20180612
  Transmission Date: 20180711
  Serious: Yes (Hospitalization)
  Sender: FDA-Public Use
  Company Number: DE-TEVA-2018-DE-905855

PATIENT
  Age: 89 Year
  Sex: Male

DRUGS (5)
  1. AMLODIPIN [Suspect]
     Active Substance: AMLODIPINE BESYLATE
     Dosage: 1-0-0-0
     Route: 065
  2. OLMESARTAN [Suspect]
     Active Substance: OLMESARTAN
     Dosage: 1-0-0-0
     Route: 065
  3. CORVATON [Suspect]
     Active Substance: MOLSIDOMINE
     Dosage: 8 MG, 1-0-1-0
     Route: 065
  4. ASS 100 [Concomitant]
     Active Substance: ASPIRIN
     Dosage: 100 MG, 0-1-0-0
     Route: 065
  5. SIMVASTATIN. [Concomitant]
     Active Substance: SIMVASTATIN
     Dosage: 0-0-1-0
     Route: 065

REACTIONS (2)
  - Syncope [Unknown]
  - Hypotension [Unknown]
